FAERS Safety Report 13680119 (Version 1)
Quarter: 2017Q2

REPORT INFORMATION
  Report Type: Report from Study
  Country: US (occurrence: US)
  Receive Date: 20170622
  Receipt Date: 20170622
  Transmission Date: 20170830
  Serious: Yes (Hospitalization, Other)
  Sender: FDA-Public Use
  Company Number: US-VIFOR (INTERNATIONAL) INC.-VIT-2017-01512

PATIENT
  Age: 62 Year
  Sex: Male

DRUGS (1)
  1. VELTASSA [Suspect]
     Active Substance: PATIROMER
     Indication: PRODUCT USED FOR UNKNOWN INDICATION
     Dates: start: 20170208

REACTIONS (14)
  - Malaise [Recovering/Resolving]
  - Dizziness [Unknown]
  - Hepatitis C [Recovering/Resolving]
  - Ejection fraction decreased [Unknown]
  - Wheelchair user [Not Recovered/Not Resolved]
  - Abdominal discomfort [Unknown]
  - Vomiting [Unknown]
  - Cardiac pacemaker insertion [Unknown]
  - Hepatic function abnormal [Recovering/Resolving]
  - Diabetes mellitus [Unknown]
  - Personality disorder [Unknown]
  - Renal disorder [Unknown]
  - Balance disorder [Unknown]
  - Cardiac failure [Unknown]

NARRATIVE: CASE EVENT DATE: 2017
